FAERS Safety Report 16223766 (Version 1)
Quarter: 2019Q2

REPORT INFORMATION
  Report Type: Spontaneous
  Country: US (occurrence: US)
  Receive Date: 20190419
  Receipt Date: 20190419
  Transmission Date: 20190711
  Serious: Yes (Hospitalization)
  Sender: FDA-Public Use
  Company Number: None

PATIENT
  Age: 81 Year
  Sex: Male
  Weight: 76.7 kg

DRUGS (1)
  1. ALTEPLASE. [Suspect]
     Active Substance: ALTEPLASE

REACTIONS (5)
  - Thrombotic stroke [None]
  - Cerebral ischaemia [None]
  - Hypercoagulation [None]
  - Thrombosis [None]
  - Acute myocardial infarction [None]

NARRATIVE: CASE EVENT DATE: 20190318
